FAERS Safety Report 5431986-4 (Version None)
Quarter: 2007Q3

REPORT INFORMATION
  Report Type: 
  Country: None (occurrence: None)
  Receive Date: 20070731
  Receipt Date: 20070504
  Transmission Date: 20080115
  Serious: No
  Sender: FDA-Public Use
  Company Number: US200705001568

PATIENT
  Age: 67 Year
  Sex: Female

DRUGS (4)
  1. BYETTA [Suspect]
     Indication: TYPE 2 DIABETES MELLITUS
     Dosage: 5 UG, 2/D, SUBCUTANEOUS ; 10 UG, 2/D, SUBCUTANEOUS
     Route: 058
     Dates: start: 20070201, end: 20070430
  2. BYETTA [Suspect]
     Indication: TYPE 2 DIABETES MELLITUS
     Dosage: 5 UG, 2/D, SUBCUTANEOUS ; 10 UG, 2/D, SUBCUTANEOUS
     Route: 058
     Dates: start: 20070501
  3. GLUCOPHAGE [Concomitant]
  4. GLYBURIDE [Concomitant]

REACTIONS (8)
  - BLOOD GLUCOSE DECREASED [None]
  - BLOOD GLUCOSE INCREASED [None]
  - CONFUSIONAL STATE [None]
  - MALAISE [None]
  - NAUSEA [None]
  - RENAL DISORDER [None]
  - TREMOR [None]
  - VISUAL ACUITY REDUCED [None]
